FAERS Safety Report 6022738-5 (Version None)
Quarter: 2008Q4

REPORT INFORMATION
  Report Type: 
  Country: None (occurrence: None)
  Receive Date: 20081223
  Receipt Date: 20081208
  Transmission Date: 20090506
  Serious: Yes (Death)
  Sender: FDA-Public Use
  Company Number: 2008US003239

PATIENT
  Age: 65 Year
  Sex: Female

DRUGS (6)
  1. PROGRAF [Suspect]
     Indication: LUNG TRANSPLANT
  2. AZATHIOPRINE [Suspect]
     Indication: LUNG TRANSPLANT
  3. METHYLPREDNISOLONE 16MG TAB [Suspect]
     Indication: LUNG TRANSPLANT
  4. ACYCLOVIR [Concomitant]
  5. SULFAMETHOXAZOLE AND TRIMETHOPRIM [Concomitant]
  6. ITRACONAZOLE [Concomitant]

REACTIONS (3)
  - BRONCHIAL FISTULA [None]
  - HAEMOPTYSIS [None]
  - PULMONARY ARTERIOVENOUS FISTULA [None]
